FAERS Safety Report 4300016-X (Version None)
Quarter: 2004Q1

REPORT INFORMATION
  Report Type: 
  Country: None (occurrence: None)
  Receive Date: 20040218
  Receipt Date: 20040203
  Transmission Date: 20041129
  Serious: Yes (Life-Threatening, Hospitalization)
  Sender: FDA-Public Use
  Company Number: EWC040237934

PATIENT
  Age: 60 Year
  Sex: Male

DRUGS (3)
  1. GEMCITABINE HYDROCHLORIDE -IV (GEMCITABINE) [Suspect]
     Indication: CARCINOMA
     Dosage: 1250 MG/M2/1 OTHER
     Dates: start: 20040109, end: 20040109
  2. DEXAMETHASONE [Concomitant]
  3. ONDANSETRON HCL [Concomitant]

REACTIONS (2)
  - APHASIA [None]
  - CEREBRAL ISCHAEMIA [None]
